FAERS Safety Report 10327768 (Version 3)
Quarter: 2014Q4

REPORT INFORMATION
  Report Type: Report from Study
  Country: BG (occurrence: BG)
  Receive Date: 20140721
  Receipt Date: 20141015
  Transmission Date: 20150528
  Serious: No
  Sender: FDA-Public Use
  Company Number: BG-UCBSA-2014001693

PATIENT
  Age: 54 Year
  Sex: Male
  Weight: 52 kg

DRUGS (7)
  1. PENTOXIFYLLINE. [Concomitant]
     Active Substance: PENTOXIFYLLINE
     Indication: CEREBROVASCULAR ACCIDENT
     Dosage: 400 MG, 2X/DAY (BID)
     Route: 048
     Dates: start: 20130709
  2. CANDESARTAN [Concomitant]
     Active Substance: CANDESARTAN
     Indication: HYPERTENSION
     Dosage: 16 MG, ONCE DAILY (QD)
     Route: 048
     Dates: start: 20130709
  3. CARBAMAZEPINE. [Suspect]
     Active Substance: CARBAMAZEPINE
     Indication: EPILEPSY
     Dosage: 100 LCM/200 CBZ,  2X/DAY (BID)
     Route: 048
     Dates: start: 20131028
  4. CONCOR [Concomitant]
     Active Substance: BISOPROLOL FUMARATE
     Indication: HYPERTENSION
     Dosage: 5 MG, ONCE DAILY (QD)
     Route: 048
     Dates: start: 20130710
  5. LACOSAMIDE [Suspect]
     Active Substance: LACOSAMIDE
     Indication: EPILEPSY
     Dosage: 100 LCM/200 CBZ,  2X/DAY (BID)
     Route: 048
     Dates: start: 20131028
  6. NOOTROPIL [Concomitant]
     Active Substance: PIRACETAM
     Indication: CEREBROVASCULAR ACCIDENT
     Dosage: 1200 MG, 2X/DAY (BID)
     Route: 048
     Dates: start: 20130709
  7. CAVINTON [Concomitant]
     Active Substance: VINPOCETINE
     Indication: CEREBROVASCULAR ACCIDENT
     Dosage: 10 MG, 3X/DAY (TID)
     Route: 048
     Dates: start: 20130709

REACTIONS (3)
  - Neutrophil count increased [Not Recovered/Not Resolved]
  - Platelet count increased [Not Recovered/Not Resolved]
  - Neutropenia [Not Recovered/Not Resolved]

NARRATIVE: CASE EVENT DATE: 20131018
